FAERS Safety Report 13571665 (Version 4)
Quarter: 2017Q3

REPORT INFORMATION
  Report Type: Spontaneous
  Country: US (occurrence: US)
  Receive Date: 20170523
  Receipt Date: 20170707
  Transmission Date: 20171127
  Serious: No
  Sender: FDA-Public Use
  Company Number: US-PFIZER INC-2017220583

PATIENT
  Age: 62 Year
  Sex: Female
  Weight: 114.29 kg

DRUGS (3)
  1. IBRANCE [Suspect]
     Active Substance: PALBOCICLIB
     Dosage: 125 MG, CYCLIC (DAY 1-21 Q 28 DAYS )
     Route: 048
     Dates: start: 20170503
  2. IBRANCE [Suspect]
     Active Substance: PALBOCICLIB
     Dosage: 125 MG, CYCLIC (DAY 1-21 Q 28 DAYS )
     Route: 048
     Dates: start: 20170503
  3. IBRANCE [Suspect]
     Active Substance: PALBOCICLIB
     Indication: BREAST CANCER METASTATIC
     Dosage: 125 MG, CYCLIC (DAY 1-21 Q 28 DAYS )
     Route: 048
     Dates: start: 20170503

REACTIONS (5)
  - Productive cough [Unknown]
  - Weight decreased [Unknown]
  - Tumour marker increased [Unknown]
  - Hot flush [Unknown]
  - Epistaxis [Unknown]
